FAERS Safety Report 9133234 (Version 2)
Quarter: 2013Q2

REPORT INFORMATION
  Report Type: Spontaneous
  Country: JP (occurrence: JP)
  Receive Date: 20130301
  Receipt Date: 20130423
  Transmission Date: 20140414
  Serious: Yes (Other)
  Sender: FDA-Public Use
  Company Number: JP-ROCHE-1195541

PATIENT
  Age: 65 Year
  Sex: Female

DRUGS (10)
  1. DENOSINE [Suspect]
     Indication: CYTOMEGALOVIRUS CHORIORETINITIS
     Route: 050
     Dates: start: 20121213, end: 20121224
  2. AMARYL [Suspect]
     Indication: DIABETES MELLITUS
     Route: 048
     Dates: end: 20121223
  3. METGLUCON [Suspect]
     Indication: DIABETES MELLITUS
     Route: 048
     Dates: end: 20121223
  4. LOXONIN [Concomitant]
  5. MUCOSTA [Concomitant]
     Route: 048
  6. OXINORM (JAPAN) [Concomitant]
     Route: 048
  7. OXYCONTIN [Concomitant]
     Route: 048
  8. LENDORMIN D [Concomitant]
     Route: 048
  9. MAGMITT [Concomitant]
     Route: 048
  10. VALIXA [Concomitant]

REACTIONS (2)
  - Hypoglycaemia [Recovered/Resolved]
  - Bone marrow failure [None]
